FAERS Safety Report 5694757-X (Version None)
Quarter: 2008Q2

REPORT INFORMATION
  Report Type: 
  Country: None (occurrence: None)
  Receive Date: 20080404
  Receipt Date: 20080326
  Transmission Date: 20081010
  Serious: Yes (Other)
  Sender: FDA-Public Use
  Company Number: JP-JNJFOC-20080200328

PATIENT
  Sex: Male

DRUGS (18)
  1. DORIBAX [Suspect]
     Route: 041
  2. DORIBAX [Suspect]
     Route: 041
  3. DORIBAX [Suspect]
     Indication: PERITONITIS
     Route: 041
  4. CEFMETAZOLE SODIUM [Suspect]
     Indication: PERITONITIS
     Route: 041
  5. SAXIZON [Suspect]
     Indication: SEPTIC SHOCK
     Route: 042
  6. FENTANYL CITRATE [Suspect]
     Route: 041
  7. FENTANYL CITRATE [Suspect]
     Indication: ANALGESIA
     Route: 041
  8. MIDAZOLAM HCL [Suspect]
     Indication: SEDATION
     Route: 041
  9. OMEPRAL [Suspect]
     Indication: PROPHYLAXIS
     Route: 042
  10. NORADRENALIN [Suspect]
     Indication: HYPOTENSION
     Route: 041
  11. DIBASIC POTASSIUM PHOSPHATE [Suspect]
     Indication: DRUG USE FOR UNKNOWN INDICATION
     Route: 041
  12. LASIX [Suspect]
     Indication: DIURETIC THERAPY
     Route: 042
  13. PETHIDINE HYDROCHLORIDE [Suspect]
     Indication: PERITONITIS
     Route: 042
  14. DILTIAZEM HYDROCHLORIDE [Suspect]
     Indication: TACHYCARDIA
     Route: 041
  15. NICARPINE [Suspect]
     Indication: HYPERTENSION
     Route: 041
  16. LEPETAN [Suspect]
     Indication: ANALGESIA
     Route: 042
  17. PROPOFOL [Suspect]
     Indication: SEDATION
     Route: 041
  18. ROPION [Suspect]
     Indication: ANALGESIA
     Route: 041

REACTIONS (4)
  - ALANINE AMINOTRANSFERASE INCREASED [None]
  - ASPARTATE AMINOTRANSFERASE INCREASED [None]
  - BLOOD ALKALINE PHOSPHATASE INCREASED [None]
  - BLOOD BILIRUBIN INCREASED [None]
